FAERS Safety Report 6683935-9 (Version None)
Quarter: 2010Q2

REPORT INFORMATION
  Report Type: 
  Country: None (occurrence: None)
  Receive Date: 20100416
  Receipt Date: 20100406
  Transmission Date: 20101027
  Serious: Yes (Other)
  Sender: FDA-Public Use
  Company Number: US-PFIZER INC-2010045030

PATIENT
  Sex: Male
  Weight: 86.168 kg

DRUGS (5)
  1. GEODON [Suspect]
     Dosage: 80 MG, 2X/DAY
  2. GEODON [Suspect]
     Dosage: 80 MG, 1X/DAY
  3. KLONOPIN [Concomitant]
     Dosage: 1 MG, 2X/DAY
  4. TEGRETOL [Concomitant]
     Dosage: 400 MG, 2X/DAY
  5. LITHIUM [Concomitant]
     Dosage: 600 MG, 2X/DAY

REACTIONS (4)
  - ACTIVITIES OF DAILY LIVING IMPAIRED [None]
  - FATIGUE [None]
  - MALAISE [None]
  - SOMNOLENCE [None]
